FAERS Safety Report 4265817-5 (Version None)
Quarter: 2004Q1

REPORT INFORMATION
  Report Type: 
  Country: None (occurrence: None)
  Receive Date: 20040107
  Receipt Date: 20040107
  Transmission Date: 20041129
  Serious: Yes (Other)
  Sender: FDA-Public Use
  Company Number: None

PATIENT
  Sex: Female
  Weight: 74.8435 kg

DRUGS (2)
  1. MIDODRINE HCL [Suspect]
     Indication: CHRONIC FATIGUE SYNDROME
     Dosage: ONE QD
     Dates: start: 20031012, end: 20031026
  2. MIDODRINE HCL [Suspect]
     Indication: HYPOTENSION
     Dosage: ONE QD
     Dates: start: 20031012, end: 20031026

REACTIONS (1)
  - DRUG EFFECT DECREASED [None]
